FAERS Safety Report 16786606 (Version 1)
Quarter: 2019Q3

REPORT INFORMATION
  Report Type: Spontaneous
  Country: US (occurrence: US)
  Receive Date: 20190909
  Receipt Date: 20190909
  Transmission Date: 20191005
  Serious: No
  Sender: FDA-Public Use
  Company Number: US-OSMOTICA_PHARMACEUTICAL_US_LLC-POI0573201900229

PATIENT
  Age: 77 Year
  Sex: Female
  Weight: 48.12 kg

DRUGS (7)
  1. OSMOLEX ER [Suspect]
     Active Substance: AMANTADINE
     Indication: VASCULAR PARKINSONISM
     Dates: start: 201904, end: 201905
  2. TRIHEXPHENIDYL [Concomitant]
     Active Substance: TRIHEXYPHENIDYL
     Indication: PRODUCT USED FOR UNKNOWN INDICATION
  3. UNSPECIFIED THYROID MEDICATION [Concomitant]
     Active Substance: UNSPECIFIED INGREDIENT
     Indication: HYPOTHYROIDISM
  4. UNSPECIFIED GLAUCOMA EYE DROPS [Concomitant]
     Indication: GLAUCOMA
     Route: 047
  5. OSMOLEX ER [Suspect]
     Active Substance: AMANTADINE
     Dates: start: 201905
  6. HORIZANT [Concomitant]
     Active Substance: GABAPENTIN ENACARBIL
     Indication: PRODUCT USED FOR UNKNOWN INDICATION
  7. BACLOFEN WITH PIROXICAM AND CYCLOBENZAPRINE AND LIDOCAINE [Concomitant]
     Indication: PRODUCT USED FOR UNKNOWN INDICATION
     Dosage: BACLOFEN 2 PERCENT?PIROXICAM 1 PERCENT?CYCLOBENZAPRINE 2 PERCENT?LIDOCAINE 2 PERCENT CREAM
     Route: 061

REACTIONS (2)
  - Abnormal dreams [Not Recovered/Not Resolved]
  - Off label use [Not Recovered/Not Resolved]

NARRATIVE: CASE EVENT DATE: 201904
